FAERS Safety Report 9853898 (Version 9)
Quarter: 2016Q3

REPORT INFORMATION
  Report Type: Spontaneous
  Country: US (occurrence: US)
  Receive Date: 20140129
  Receipt Date: 20160923
  Transmission Date: 20161109
  Serious: Yes (Hospitalization, Disabling, Other)
  Sender: FDA-Public Use
  Company Number: US-MERCK-1401USA011320

PATIENT
  Sex: Female
  Weight: 55.33 kg

DRUGS (9)
  1. CENTRUM SILVER [Concomitant]
     Active Substance: MINERALS\VITAMINS
     Indication: ROUTINE HEALTH MAINTENANCE
     Dosage: UNK, UNKNOWN
     Route: 048
     Dates: start: 2000
  2. FOSAMAX [Suspect]
     Active Substance: ALENDRONATE SODIUM
     Indication: OSTEOPENIA
     Dosage: 70 MG, QW
     Route: 048
     Dates: start: 200305, end: 20060930
  3. ACTONEL [Suspect]
     Active Substance: RISEDRONATE SODIUM
     Indication: OSTEOPENIA
     Dosage: 150 MG, UNKNOWN
     Route: 048
     Dates: start: 20101120, end: 20110120
  4. ACTONEL [Suspect]
     Active Substance: RISEDRONATE SODIUM
     Indication: OSTEOPOROSIS
  5. VITAMIN D [Concomitant]
     Active Substance: CHOLECALCIFEROL
     Indication: VITAMIN D DEFICIENCY
     Dosage: 2000 MG, UNKNOWN
     Route: 048
     Dates: start: 2000
  6. FOSAMAX PLUS D [Suspect]
     Active Substance: ALENDRONATE SODIUM\CHOLECALCIFEROL
     Indication: OSTEOPOROSIS
     Dosage: 70 MG/2800 IU, UNKNOWN
     Route: 048
     Dates: start: 20070724
  7. CALCIUM (UNSPECIFIED) [Concomitant]
     Active Substance: CALCIUM
     Indication: CALCIUM DEFICIENCY
     Dosage: 600 MG, UNKNOWN
     Route: 048
     Dates: start: 2000
  8. FOSAMAX [Suspect]
     Active Substance: ALENDRONATE SODIUM
     Indication: OSTEOPOROSIS
  9. FOSAMAX PLUS D [Suspect]
     Active Substance: ALENDRONATE SODIUM\CHOLECALCIFEROL
     Indication: OSTEOPENIA
     Dosage: 70 MG/5600 IU, UNK
     Route: 048
     Dates: start: 200504, end: 20101120

REACTIONS (15)
  - Femur fracture [Recovering/Resolving]
  - Gait disturbance [Unknown]
  - Haemoglobin decreased [Unknown]
  - Fibrocystic breast disease [Unknown]
  - Arthralgia [Unknown]
  - Ovarian cyst [Unknown]
  - Pain in extremity [Unknown]
  - Intramedullary rod insertion [Unknown]
  - Haematocrit decreased [Unknown]
  - Femur fracture [Recovering/Resolving]
  - Intramedullary rod insertion [Unknown]
  - Onychomycosis [Unknown]
  - Hyperlipidaemia [Unknown]
  - Pain [Not Recovered/Not Resolved]
  - Muscular weakness [Recovered/Resolved]

NARRATIVE: CASE EVENT DATE: 2003
